FAERS Safety Report 24573560 (Version 2)
Quarter: 2024Q4

REPORT INFORMATION
  Report Type: Spontaneous
  Country: US (occurrence: US)
  Receive Date: 20241102
  Receipt Date: 20241102
  Transmission Date: 20250115
  Serious: No
  Sender: HILL DERMACEUTICALS, INC.
  Company Number: US-Hill Dermaceuticals, Inc.-2164259

PATIENT
  Sex: Male

DRUGS (1)
  1. TOLAK [Suspect]
     Active Substance: FLUOROURACIL
     Indication: Product used for unknown indication

REACTIONS (3)
  - Eye swelling [Unknown]
  - Swelling face [Unknown]
  - Swelling face [Unknown]
